FAERS Safety Report 25802835 (Version 1)
Quarter: 2025Q3

REPORT INFORMATION
  Report Type: Spontaneous
  Country: US (occurrence: US)
  Receive Date: 20250915
  Receipt Date: 20250915
  Transmission Date: 20251020
  Serious: No
  Sender: AMGEN
  Company Number: US-AMGEN-USASP2025182568

PATIENT
  Age: 58 Year
  Sex: Female

DRUGS (16)
  1. OTEZLA [Suspect]
     Active Substance: APREMILAST
     Indication: Psoriatic arthropathy
     Dosage: 30 MILLIGRAM, BID
     Route: 048
     Dates: start: 20250818
  2. VITAMIN D3 [Concomitant]
     Active Substance: CHOLECALCIFEROL
  3. CARVEDILOL [Concomitant]
     Active Substance: CARVEDILOL
  4. CELECOXIB [Concomitant]
     Active Substance: CELECOXIB
  5. FUROSEMIDE [Concomitant]
     Active Substance: FUROSEMIDE
  6. JARDIANCE [Concomitant]
     Active Substance: EMPAGLIFLOZIN
  7. LIOTHYRONINE [Concomitant]
     Active Substance: LIOTHYRONINE
  8. LORAZEPAM [Concomitant]
     Active Substance: LORAZEPAM
  9. MOUNJARO [Concomitant]
     Active Substance: TIRZEPATIDE
  10. ONDANSETRON [Concomitant]
     Active Substance: ONDANSETRON
  11. PHENTERMINE [Concomitant]
     Active Substance: PHENTERMINE
  12. PREGABALIN [Concomitant]
     Active Substance: PREGABALIN
  13. PROMETHAZINE [Concomitant]
     Active Substance: PROMETHAZINE HYDROCHLORIDE
  14. SYNTHROID [Concomitant]
     Active Substance: LEVOTHYROXINE SODIUM
  15. SULFASALAZINE [Concomitant]
     Active Substance: SULFASALAZINE
  16. CHONDROITIN SULFATE A\GLUCOSAMINE [Concomitant]
     Active Substance: CHONDROITIN SULFATE A\GLUCOSAMINE

REACTIONS (2)
  - Diarrhoea [Not Recovered/Not Resolved]
  - Nausea [Not Recovered/Not Resolved]

NARRATIVE: CASE EVENT DATE: 20250101
